FAERS Safety Report 7767776-7 (Version None)
Quarter: 2011Q3

REPORT INFORMATION
  Report Type: 
  Country: None (occurrence: None)
  Receive Date: 20110922
  Receipt Date: 20101108
  Transmission Date: 20111222
  Serious: No
  Sender: FDA-Public Use
  Company Number: US-ASTRAZENECA-2010SE53389

PATIENT
  Sex: Female

DRUGS (2)
  1. SEROQUEL [Suspect]
     Route: 048
  2. SEROQUEL [Suspect]
     Route: 048
     Dates: end: 20101001

REACTIONS (6)
  - ANXIETY [None]
  - PARANOIA [None]
  - INSOMNIA [None]
  - NERVOUSNESS [None]
  - DRUG DOSE OMISSION [None]
  - CRYING [None]
